FAERS Safety Report 26202886 (Version 1)
Quarter: 2025Q4

REPORT INFORMATION
  Report Type: Report from Study
  Country: US (occurrence: US)
  Receive Date: 20251226
  Receipt Date: 20251226
  Transmission Date: 20260117
  Serious: Yes (Other)
  Sender: ALEXION PHARMACEUTICALS
  Company Number: US-AstraZeneca-CH-01018781A

PATIENT
  Age: 83 Year
  Sex: Female

DRUGS (2)
  1. OSIMERTINIB [Suspect]
     Active Substance: OSIMERTINIB
     Dosage: 40 MILLIGRAM
     Route: 065
  2. OSIMERTINIB [Suspect]
     Active Substance: OSIMERTINIB
     Dosage: 80 MILLIGRAM
     Route: 065

REACTIONS (11)
  - Lung neoplasm malignant [Unknown]
  - Glaucoma [Unknown]
  - Incorrect dose administered [Unknown]
  - Adverse drug reaction [Unknown]
  - Intentional dose omission [Unknown]
  - Confusional state [Unknown]
  - Pleural effusion [Unknown]
  - Dyspnoea [Unknown]
  - Stomatitis [Unknown]
  - Eye pain [Unknown]
  - Ill-defined disorder [Unknown]
